FAERS Safety Report 25439840 (Version 1)
Quarter: 2025Q2

REPORT INFORMATION
  Report Type: Other
  Country: IN (occurrence: IN)
  Receive Date: 20250616
  Receipt Date: 20250616
  Transmission Date: 20250717
  Serious: Yes (Other)
  Sender: Kanchan Healthcare
  Company Number: IN-Kanchan Healthcare INC-2178766

PATIENT
  Age: 22 Year
  Sex: Male

DRUGS (4)
  1. ETHAMBUTOL HYDROCHLORIDE [Suspect]
     Active Substance: ETHAMBUTOL HYDROCHLORIDE
     Indication: Pulmonary tuberculosis
  2. ISONIAZID [Suspect]
     Active Substance: ISONIAZID
  3. PYRAZINAMIDE [Suspect]
     Active Substance: PYRAZINAMIDE
  4. RIFAMPIN [Suspect]
     Active Substance: RIFAMPIN

REACTIONS (1)
  - Pemphigoid [Recovering/Resolving]
